FAERS Safety Report 8792517 (Version 2)
Quarter: 2013Q2

REPORT INFORMATION
  Report Type: Spontaneous
  Country: CH (occurrence: CH)
  Receive Date: 20120918
  Receipt Date: 20130520
  Transmission Date: 20140414
  Serious: Yes (Other)
  Sender: FDA-Public Use
  Company Number: CH-JNJFOC-20120902782

PATIENT
  Age: 58 Year
  Sex: Male
  Weight: 80 kg

DRUGS (3)
  1. STELARA [Suspect]
     Indication: PSORIASIS
     Dosage: 8 INJECTIONS RECEIVED IN TOTAL
     Route: 058
     Dates: start: 20110614
  2. CYCLOSPORIN [Concomitant]
     Route: 065
  3. ADALIMUMAB [Concomitant]
     Route: 065

REACTIONS (2)
  - Necrotising ulcerative gingivostomatitis [Recovered/Resolved]
  - Periodontitis [Recovered/Resolved]
